FAERS Safety Report 14273574 (Version 3)
Quarter: 2018Q4

REPORT INFORMATION
  Report Type: Spontaneous
  Country: US (occurrence: US)
  Receive Date: 20171211
  Receipt Date: 20181211
  Transmission Date: 20190204
  Serious: Yes (Hospitalization, Other)
  Sender: FDA-Public Use
  Company Number: US-OTSUKA-2016_030419

PATIENT
  Age: 36 Year
  Sex: Female

DRUGS (22)
  1. ABILIFY [Suspect]
     Active Substance: ARIPIPRAZOLE
     Indication: BIPOLAR DISORDER
     Dosage: 2 MG, QD
     Route: 065
     Dates: start: 20110518
  2. TOPIRAMATE. [Concomitant]
     Active Substance: TOPIRAMATE
     Indication: PRODUCT USED FOR UNKNOWN INDICATION
     Dosage: UNK
     Route: 065
  3. SEROQUEL [Concomitant]
     Active Substance: QUETIAPINE FUMARATE
     Indication: PRODUCT USED FOR UNKNOWN INDICATION
     Dosage: UNK
     Route: 065
  4. HYDROXYZINE [Concomitant]
     Active Substance: HYDROXYZINE HYDROCHLORIDE
     Indication: PRODUCT USED FOR UNKNOWN INDICATION
     Dosage: 50 MG, QD
     Route: 065
  5. VISTARIL [Concomitant]
     Active Substance: HYDROXYZINE PAMOATE
     Indication: PRODUCT USED FOR UNKNOWN INDICATION
     Dosage: 50 MG, QD
     Route: 065
  6. LAMICTAL [Concomitant]
     Active Substance: LAMOTRIGINE
     Indication: BIPOLAR DISORDER
     Dosage: 150 MG, QD
     Route: 065
  7. LAMOTRIGINE. [Concomitant]
     Active Substance: LAMOTRIGINE
     Indication: PRODUCT USED FOR UNKNOWN INDICATION
     Dosage: UNK
     Route: 065
  8. PAXIL [Concomitant]
     Active Substance: PAROXETINE HYDROCHLORIDE
     Indication: DEPRESSED MOOD
     Dosage: 40 MG, APPROX 1 MONTH
     Route: 065
  9. ABILIFY [Suspect]
     Active Substance: ARIPIPRAZOLE
     Indication: MAJOR DEPRESSION
     Dosage: 2.5 MG, QD
     Route: 065
  10. BENADRYL [Concomitant]
     Active Substance: DIPHENHYDRAMINE HYDROCHLORIDE
     Indication: PRODUCT USED FOR UNKNOWN INDICATION
     Dosage: 50 MG, UNK
     Route: 065
  11. DIPHENHYDRAMINE. [Concomitant]
     Active Substance: DIPHENHYDRAMINE
     Indication: PRODUCT USED FOR UNKNOWN INDICATION
     Dosage: UNK
     Route: 065
  12. ALPRAZOLAM. [Concomitant]
     Active Substance: ALPRAZOLAM
     Indication: PRODUCT USED FOR UNKNOWN INDICATION
     Dosage: UNK
     Route: 065
  13. ATIVAN [Concomitant]
     Active Substance: LORAZEPAM
     Indication: PRODUCT USED FOR UNKNOWN INDICATION
     Dosage: 0.5 MG, UNK
     Route: 065
  14. ABILIFY [Suspect]
     Active Substance: ARIPIPRAZOLE
     Dosage: 5 MG, QD
     Route: 065
     Dates: end: 20140620
  15. LAMICTAL [Concomitant]
     Active Substance: LAMOTRIGINE
     Dosage: 100 MG, QD
     Route: 065
  16. TEMAZEPAM. [Concomitant]
     Active Substance: TEMAZEPAM
     Indication: PRODUCT USED FOR UNKNOWN INDICATION
     Dosage: UNK
     Route: 065
  17. VENLAFAXINE [Concomitant]
     Active Substance: VENLAFAXINE HYDROCHLORIDE
     Indication: PRODUCT USED FOR UNKNOWN INDICATION
     Dosage: UNK
     Route: 065
  18. LAMICTAL [Concomitant]
     Active Substance: LAMOTRIGINE
     Dosage: 125 MG, QD
     Route: 065
  19. BUPROPION. [Concomitant]
     Active Substance: BUPROPION
     Indication: PRODUCT USED FOR UNKNOWN INDICATION
     Dosage: UNK
     Route: 065
  20. PAROXETINE HYDROCHLORIDE. [Concomitant]
     Active Substance: PAROXETINE HYDROCHLORIDE
     Indication: PRODUCT USED FOR UNKNOWN INDICATION
     Dosage: UNK
     Route: 065
  21. SAPHRIS [Concomitant]
     Active Substance: ASENAPINE MALEATE
     Indication: PRODUCT USED FOR UNKNOWN INDICATION
     Dosage: UNK
     Route: 065
  22. LITHIUM CARBONATE. [Concomitant]
     Active Substance: LITHIUM CARBONATE
     Indication: PRODUCT USED FOR UNKNOWN INDICATION
     Dosage: 300 MG, QD
     Route: 065

REACTIONS (45)
  - Gambling disorder [Recovered/Resolved]
  - Fatigue [Unknown]
  - Pain in jaw [Unknown]
  - Low density lipoprotein increased [Unknown]
  - Malaise [Unknown]
  - Asthenia [Unknown]
  - Hypersomnia [Unknown]
  - Overdose [Unknown]
  - Self-injurious ideation [Unknown]
  - Headache [Unknown]
  - Weight increased [Unknown]
  - Bankruptcy [Unknown]
  - Panic attack [Unknown]
  - Suicide attempt [Unknown]
  - Emotional disorder [Unknown]
  - Haematocrit increased [Unknown]
  - Blood triglycerides increased [Unknown]
  - Insomnia [Unknown]
  - Suicidal ideation [Unknown]
  - Anhedonia [Unknown]
  - Apathy [Unknown]
  - Menstruation irregular [Unknown]
  - Anxiety [Unknown]
  - Diarrhoea [Unknown]
  - Mental disorder [Unknown]
  - Stress [Unknown]
  - Feeling guilty [Unknown]
  - Compulsive sexual behaviour [Recovered/Resolved]
  - Gastrointestinal disorder [Unknown]
  - Obsessive-compulsive disorder [Unknown]
  - Abdominal pain upper [Unknown]
  - Rash [Unknown]
  - Somnolence [Unknown]
  - Economic problem [Unknown]
  - Depressed mood [Unknown]
  - High density lipoprotein decreased [Unknown]
  - Eating disorder [Recovered/Resolved]
  - Urinary tract infection [Unknown]
  - Nausea [Unknown]
  - Pruritus [Unknown]
  - Ear infection [Unknown]
  - Poor quality sleep [Unknown]
  - Condition aggravated [Recovered/Resolved]
  - Decreased appetite [Unknown]
  - Loss of employment [Unknown]

NARRATIVE: CASE EVENT DATE: 201205
